FAERS Safety Report 6949918-6 (Version None)
Quarter: 2010Q3

REPORT INFORMATION
  Report Type: 
  Country: None (occurrence: None)
  Receive Date: 20100828
  Receipt Date: 20100115
  Transmission Date: 20110219
  Serious: No
  Sender: FDA-Public Use
  Company Number: US-ABBOTT-10P-163-0620588-00

PATIENT
  Sex: Male
  Weight: 76.272 kg

DRUGS (4)
  1. NIASPAN [Suspect]
     Indication: BLOOD CHOLESTEROL INCREASED
     Dosage: TOOK FOR 3 DAYS
  2. UNKNOWN BLOOD THINNER [Concomitant]
     Indication: CORONARY ARTERY DISEASE
  3. UNKNOWN BLOOD PRESSURE MEDICATION [Concomitant]
     Indication: HYPERTENSION
  4. UNKNOWN BETA BLOCKER [Concomitant]
     Indication: CORONARY ARTERY DISEASE

REACTIONS (1)
  - FLUSHING [None]
